FAERS Safety Report 7704248-X (Version None)
Quarter: 2011Q3

REPORT INFORMATION
  Report Type: 
  Country: None (occurrence: None)
  Receive Date: 20110823
  Receipt Date: 20110811
  Transmission Date: 20111222
  Serious: Yes (Hospitalization)
  Sender: FDA-Public Use
  Company Number: CA-JNJFOC-20110806823

PATIENT
  Sex: Male

DRUGS (5)
  1. METHOTREXATE [Concomitant]
  2. REMICADE [Suspect]
     Indication: CROHN'S DISEASE
     Route: 042
     Dates: start: 20110531
  3. PREDNISONE TAB [Concomitant]
  4. VITAMIN D [Concomitant]
  5. FOLIC ACID [Concomitant]

REACTIONS (1)
  - PROCTOCOLECTOMY [None]
